FAERS Safety Report 6019776-5 (Version None)
Quarter: 2008Q4

REPORT INFORMATION
  Report Type: 
  Country: None (occurrence: None)
  Receive Date: 20081224
  Receipt Date: 20081211
  Transmission Date: 20090506
  Serious: Yes (Other)
  Sender: FDA-Public Use
  Company Number: GB-GENENTECH-268067

PATIENT
  Sex: Female

DRUGS (2)
  1. BEVACIZUMAB [Suspect]
     Indication: COLON CANCER
     Dosage: 525 MG, Q3W
     Route: 042
     Dates: start: 20080603
  2. CAPECITABINE [Suspect]
     Indication: COLON CANCER
     Dosage: 2250 MG, BID
     Route: 048
     Dates: start: 20080603

REACTIONS (1)
  - DEEP VEIN THROMBOSIS [None]
